FAERS Safety Report 9513311 (Version 1)
Quarter: 2013Q1

REPORT INFORMATION
  Report Type: Spontaneous
  Country: US (occurrence: None)
  Receive Date: 20130305
  Receipt Date: 20130305
  Transmission Date: 20140127
  Serious: Yes (Other)
  Sender: FDA-Public Use
  Company Number: 163-21880-12101614

PATIENT
  Sex: Male

DRUGS (4)
  1. REVLIMID [Suspect]
     Indication: AMYLOIDOSIS
     Dosage: 21 IN 21 D
     Route: 048
     Dates: start: 20120926
  2. PANTOPRAZOLE SODIUM [Concomitant]
  3. CHLORPROMAZINE HCL [Concomitant]
  4. SIMVASTATIN [Concomitant]

REACTIONS (2)
  - Pulmonary embolism [None]
  - Oedema peripheral [None]
